FAERS Safety Report 14502306 (Version 1)
Quarter: 2018Q1

REPORT INFORMATION
  Report Type: Spontaneous
  Country: GB (occurrence: GB)
  Receive Date: 20180208
  Receipt Date: 20180208
  Transmission Date: 20180509
  Serious: Yes (Other)
  Sender: FDA-Public Use
  Company Number: GB-ASTRAZENECA-2018SE12928

PATIENT
  Age: 60 Year
  Sex: Female
  Weight: 115 kg

DRUGS (26)
  1. FLUOXETINE [Concomitant]
     Active Substance: FLUOXETINE HYDROCHLORIDE
     Dates: start: 20150817
  2. FLUCLOXACILLIN [Concomitant]
     Active Substance: FLUCLOXACILLIN
     Dates: start: 20171103, end: 20171110
  3. CARBOMER [Concomitant]
     Active Substance: CARBOMER
     Dosage: 1 GTT, 3-4 TIMES/DAY
     Dates: start: 20150914
  4. ACIDEX [Concomitant]
     Active Substance: CALCIUM CARBONATE\SODIUM ALGINATE\SODIUM BICARBONATE
     Dates: start: 20150617
  5. SOTALOL. [Concomitant]
     Active Substance: SOTALOL
     Dates: start: 20080509
  6. HYDROCORTISONE. [Concomitant]
     Active Substance: HYDROCORTISONE
     Dosage: APPLY ONCE TO TWICE A DAY
     Dates: start: 20140218
  7. METOCLOPRAMIDE. [Concomitant]
     Active Substance: METOCLOPRAMIDE
     Dosage: 1 DF, UP TO 3 TIMES/DAY
     Dates: start: 20160208
  8. GLYCERYL TRINITRATE [Concomitant]
     Active Substance: NITROGLYCERIN
     Indication: ANGINA PECTORIS
     Dates: start: 20130513
  9. ESOMEPRAZOLE [Concomitant]
     Active Substance: ESOMEPRAZOLE
     Dates: start: 20160415
  10. DIGOXIN. [Concomitant]
     Active Substance: DIGOXIN
     Dates: start: 20151112
  11. RAMIPRIL. [Concomitant]
     Active Substance: RAMIPRIL
     Dates: start: 20080509
  12. PARACETAMOL [Concomitant]
     Active Substance: ACETAMINOPHEN
     Dosage: TAKE 1 OR 2 4 TIMES/DAY
     Dates: start: 20140502
  13. FUROSEMIDE. [Concomitant]
     Active Substance: FUROSEMIDE
     Dates: start: 20130701
  14. INDAPAMIDE. [Concomitant]
     Active Substance: INDAPAMIDE
     Dates: start: 20171109, end: 20171123
  15. WATER. [Concomitant]
     Active Substance: WATER
     Indication: SINUS CONGESTION
     Dosage: USE AS PER INSTRUCTIONS TO CLEAN SINUSES
     Dates: start: 20141114
  16. CAPSAICIN. [Concomitant]
     Active Substance: CAPSAICIN
     Dosage: APPLY 3-4 TIMES/DAY SPARINGLY,WASH HANDS AFTER
     Dates: start: 20141114
  17. LACRI-LUBE [Concomitant]
     Dates: start: 20150427
  18. MOMETASONE [Concomitant]
     Active Substance: MOMETASONE
     Route: 045
     Dates: start: 20170428
  19. EXENATIDE. [Suspect]
     Active Substance: EXENATIDE
     Route: 065
     Dates: start: 20171020
  20. LEVOTHYROXINE. [Concomitant]
     Active Substance: LEVOTHYROXINE
     Dates: start: 20060209
  21. COCODAMOL [Concomitant]
     Active Substance: ACETAMINOPHEN\CODEINE PHOSPHATE
     Dosage: ONE OR TWO TO BE TAKEN 4 TIMES DAILY
     Dates: start: 20150427
  22. BEZAFIBRATE [Concomitant]
     Active Substance: BEZAFIBRATE
     Dates: start: 20150303
  23. WARFARIN SODIUM. [Concomitant]
     Active Substance: WARFARIN SODIUM
     Indication: ANTICOAGULANT THERAPY
     Dosage: AS PER INTERNATIONAL NORMALIZED RATIO (INR)
     Dates: start: 20120807
  24. IBUPROFEN. [Concomitant]
     Active Substance: IBUPROFEN
     Dosage: 1 DF, APPLY 3 TIMES/DAY
     Dates: start: 20150429
  25. DEXAMETHASONE. [Concomitant]
     Active Substance: DEXAMETHASONE
     Dates: start: 20171205, end: 20171206
  26. LERCANIDIPINE HYDROCHLORIDE [Concomitant]
     Active Substance: LERCANIDIPINE HYDROCHLORIDE
     Indication: HYPERTENSION
     Dates: start: 20170928, end: 20171109

REACTIONS (4)
  - Nausea [Recovering/Resolving]
  - Urticaria [Recovered/Resolved]
  - Abdominal distension [Unknown]
  - Peripheral swelling [Unknown]

NARRATIVE: CASE EVENT DATE: 20180102
